FAERS Safety Report 8124592-4 (Version None)
Quarter: 2012Q1

REPORT INFORMATION
  Report Type: 
  Country: None (occurrence: None)
  Receive Date: 20120209
  Receipt Date: 20120109
  Transmission Date: 20120608
  Serious: Yes (Other)
  Sender: FDA-Public Use
  Company Number: US-BAYER-2012-004588

PATIENT
  Age: 21 Year
  Sex: Female
  Weight: 71.655 kg

DRUGS (6)
  1. YAZ [Suspect]
     Indication: CONTRACEPTION
     Dosage: UNK
     Dates: start: 20070901, end: 20100101
  2. FLEXERIL [Concomitant]
     Dosage: 10 MG, TID
     Route: 048
     Dates: start: 20091014, end: 20091120
  3. FLUOXETINE [Concomitant]
     Dosage: 20 MG, UNK
     Dates: start: 20091014, end: 20091120
  4. IBUPROFEN [Concomitant]
     Dosage: 800 MG, TID
     Dates: start: 20091014, end: 20091120
  5. LORTAB [Concomitant]
     Dosage: 1 TABLET, Q4HR
     Dates: start: 20091014, end: 20091120
  6. ZOLOFT [Concomitant]
     Dosage: UNK
     Dates: start: 20100106, end: 20100115

REACTIONS (6)
  - ABDOMINAL PAIN [None]
  - BILIARY DYSKINESIA [None]
  - SCAR [None]
  - CHOLECYSTITIS CHRONIC [None]
  - BACK PAIN [None]
  - PAIN [None]
